FAERS Safety Report 9001259 (Version 2)
Quarter: 2013Q1

REPORT INFORMATION
  Report Type: Spontaneous
  Country: US (occurrence: US)
  Receive Date: 20130107
  Receipt Date: 20130131
  Transmission Date: 20140127
  Serious: Yes (Hospitalization)
  Sender: FDA-Public Use
  Company Number: US-BAYER-2013-001633

PATIENT
  Age: 90 Year
  Sex: Male
  Weight: 79 kg

DRUGS (8)
  1. ALEVE GELCAP [Suspect]
     Dosage: 1 DF, QD
     Route: 048
     Dates: start: 20120330
  2. HUMULIN REGULAR [Concomitant]
  3. SYNTHROID [Concomitant]
  4. LOSARTAN [Concomitant]
  5. HYDROCHLOROTHIAZID [Concomitant]
  6. DRUGS USED IN BENIGN PROSTATIC HYPERTROPHY [Concomitant]
  7. LIPITOR [Concomitant]
  8. PRADAXA [Concomitant]

REACTIONS (2)
  - Haemorrhage [None]
  - Incorrect drug administration duration [None]
